FAERS Safety Report 21867098 (Version 1)
Quarter: 2023Q1

REPORT INFORMATION
  Report Type: Spontaneous
  Country: DE (occurrence: DE)
  Receive Date: 20230116
  Receipt Date: 20230116
  Transmission Date: 20230417
  Serious: Yes (Hospitalization)
  Sender: FDA-Public Use
  Company Number: DE-ABBVIE-4263415

PATIENT
  Age: 73 Year
  Sex: Female

DRUGS (1)
  1. METHOTREXATE [Suspect]
     Active Substance: METHOTREXATE
     Indication: Product used for unknown indication
     Dosage: UNK UNK, QW
     Route: 065

REACTIONS (3)
  - Impaired healing [Recovered/Resolved]
  - Streptococcal infection [Recovered/Resolved]
  - Ophthalmic herpes zoster [Not Recovered/Not Resolved]

NARRATIVE: CASE EVENT DATE: 20220425
